FAERS Safety Report 17109409 (Version 1)
Quarter: 2019Q4

REPORT INFORMATION
  Report Type: Report from Study
  Country: FR (occurrence: FR)
  Receive Date: 20191204
  Receipt Date: 20191204
  Transmission Date: 20200122
  Serious: Yes (Hospitalization)
  Sender: FDA-Public Use
  Company Number: FR-ROCHE-2482785

PATIENT
  Age: 27 Year
  Sex: Female

DRUGS (4)
  1. BEVACIZUMAB. [Suspect]
     Active Substance: BEVACIZUMAB
     Indication: OVARIAN CANCER
     Dosage: ON 21/JAN/2019, THERAPY WITH BEVACIZUMAB WAS TEMPORARILY STOPPED.?MOST RECENT DOSE:  ON 08/JAN/2019
     Route: 042
     Dates: start: 20191008
  2. PEGYLATED LIPOSOMAL DOXORUBICIN [Suspect]
     Active Substance: DOXORUBICIN
     Indication: OVARIAN CANCER
     Dosage: ON 21/JAN/2019, THERAPY WITH PEGYLATED LIPOSOMAL DOXORUBICIN WAS TEMPORARILY STOPPED.?MOST RECENT D
     Route: 042
     Dates: start: 20181008
  3. BLINDED ATEZOLIZUMAB [Suspect]
     Active Substance: ATEZOLIZUMAB
     Indication: OVARIAN CANCER
     Dosage: MOST RECENT DOSE:  ON 08/JAN/2019?ON 21/JAN/2019, THERAPY WITH BLINDED ATEZOLIZUMAB, WAS TEMPORARILY
     Route: 042
     Dates: start: 20181008
  4. CARBOPLATIN. [Suspect]
     Active Substance: CARBOPLATIN
     Indication: OVARIAN CANCER
     Dosage: AUC 5, MOST RECENT DOSE:  ON 08/JAN/2019?ON 21/JAN/2019, THERAPY WITH CARBOPLATIN WAS TEMPORARILY ST
     Route: 042
     Dates: start: 20181008

REACTIONS (2)
  - Thrombocytopenia [Recovered/Resolved]
  - Anaemia [Recovered/Resolved]

NARRATIVE: CASE EVENT DATE: 20190118
